FAERS Safety Report 4821281-6 (Version None)
Quarter: 2005Q4

REPORT INFORMATION
  Report Type: 
  Country: None (occurrence: None)
  Receive Date: 20051107
  Receipt Date: 19891213
  Transmission Date: 20060501
  Serious: Yes (Life-Threatening)
  Sender: FDA-Public Use
  Company Number: 893215F001

PATIENT
  Age: 26 Year
  Sex: Male
  Weight: 73 kg

DRUGS (1)
  1. TEGRETOL [Suspect]
     Indication: CONVULSION
     Route: 048
     Dates: start: 19791001, end: 19900101

REACTIONS (1)
  - HEPATIC NEOPLASM MALIGNANT RESECTABLE [None]
